FAERS Safety Report 6856799-8 (Version None)
Quarter: 2010Q3

REPORT INFORMATION
  Report Type: 
  Country: None (occurrence: None)
  Receive Date: 20100719
  Receipt Date: 20100708
  Transmission Date: 20110219
  Serious: Yes (Hospitalization, Other)
  Sender: FDA-Public Use
  Company Number: CA-AMGEN-QUU412009

PATIENT
  Sex: Female
  Weight: 55 kg

DRUGS (8)
  1. ENBREL [Suspect]
     Indication: RHEUMATOID ARTHRITIS
     Dates: start: 20061229, end: 20100429
  2. ACTONEL [Concomitant]
     Dates: start: 20050830
  3. VITAMIN B12 [Concomitant]
     Dates: start: 20050101
  4. CELEBREX [Concomitant]
     Dates: start: 20100401
  5. LASIX [Concomitant]
  6. LIPITOR [Concomitant]
  7. NORVASC [Concomitant]
  8. ATACAND [Concomitant]

REACTIONS (7)
  - ASTHENIA [None]
  - DIPLOPIA [None]
  - DYSARTHRIA [None]
  - IDIOPATHIC THROMBOCYTOPENIC PURPURA [None]
  - MYASTHENIA GRAVIS [None]
  - PETECHIAE [None]
  - THROMBOCYTOPENIA [None]
